FAERS Safety Report 17253846 (Version 1)
Quarter: 2020Q1

REPORT INFORMATION
  Report Type: Spontaneous
  Country: US (occurrence: US)
  Receive Date: 20200109
  Receipt Date: 20200109
  Transmission Date: 20200409
  Serious: No
  Sender: FDA-Public Use
  Company Number: US-AMNEAL PHARMACEUTICALS-2019-AMRX-02395

PATIENT
  Age: 41 Year
  Sex: Female

DRUGS (7)
  1. ELAGOLIX [Suspect]
     Active Substance: ELAGOLIX
     Indication: UTERINE LEIOMYOMA
     Dosage: 300 MILLIGRAM, BID
     Route: 048
     Dates: start: 20170823, end: 20180206
  2. KEFLEX [Concomitant]
     Active Substance: CEPHALEXIN
     Indication: ARTHROPOD BITE
     Dosage: 1000 MILLIGRAM(500 MG BD)
     Route: 048
     Dates: start: 20190110
  3. DOCUSATE SODIUM. [Concomitant]
     Active Substance: DOCUSATE SODIUM
     Indication: CONSTIPATION PROPHYLAXIS
     Dosage: 100 MILLIGRAM, BID
     Route: 048
     Dates: start: 20170503
  4. BROMELAIN [Concomitant]
     Active Substance: BROMELAINS
     Indication: NUTRITIONAL SUPPLEMENTATION
     Dosage: 1500 MILLIGRAM, QD
     Route: 048
     Dates: start: 20171227
  5. ACTIVELLA [Suspect]
     Active Substance: ESTRADIOL\NORETHINDRONE ACETATE
     Indication: UTERINE LEIOMYOMA
     Dosage: 1 TABLETS, BID
     Route: 048
     Dates: start: 20170823, end: 20180206
  6. FERROUS SULFATE. [Concomitant]
     Active Substance: FERROUS SULFATE
     Indication: ANAEMIA
     Dosage: 650 MILLIGRAM(325 MG BD )
     Route: 048
     Dates: start: 20170503
  7. KEFLEX [Concomitant]
     Active Substance: CEPHALEXIN
     Indication: CELLULITIS

REACTIONS (1)
  - Exposure during pregnancy [Unknown]
